FAERS Safety Report 21299651 (Version 2)
Quarter: 2022Q4

REPORT INFORMATION
  Report Type: Report from Study
  Country: US (occurrence: None)
  Receive Date: 20220906
  Receipt Date: 20221025
  Transmission Date: 20230113
  Serious: Yes (Hospitalization, Disabling, Other)
  Sender: FDA-Public Use
  Company Number: 2022A281659

PATIENT
  Age: 81 Year
  Sex: Female
  Weight: 71.5 kg

DRUGS (16)
  1. CALQUENCE [Suspect]
     Active Substance: ACALABRUTINIB
     Indication: Chronic lymphocytic leukaemia
     Route: 048
     Dates: start: 20220713, end: 20220824
  2. OMEPRAZOLE [Suspect]
     Active Substance: OMEPRAZOLE
     Route: 048
  3. ONDANSETRON [Concomitant]
     Active Substance: ONDANSETRON
  4. APIXABAN [Concomitant]
     Active Substance: APIXABAN
  5. ATORVASTATIN [Concomitant]
     Active Substance: ATORVASTATIN
  6. HEPARIN [Concomitant]
     Active Substance: HEPARIN SODIUM
  7. LOVASTATIN [Concomitant]
     Active Substance: LOVASTATIN
  8. ELIQUIS [Concomitant]
     Active Substance: APIXABAN
  9. POLYETHYLENE GLYCOL [Concomitant]
     Active Substance: POLYETHYLENE GLYCOL
  10. ALBUTEROL [Concomitant]
     Active Substance: ALBUTEROL
     Dates: start: 20220406
  11. ALLOPURINOL [Concomitant]
     Active Substance: ALLOPURINOL
  12. LOPERAMIDE [Concomitant]
     Active Substance: LOPERAMIDE
  13. SOTALOL [Concomitant]
     Active Substance: SOTALOL
  14. GABAPENTIN [Concomitant]
     Active Substance: GABAPENTIN
  15. VITAMINS [Concomitant]
     Active Substance: VITAMINS
  16. SENNA [Concomitant]
     Active Substance: SENNA LEAF\SENNOSIDES\SENNOSIDES A AND B

REACTIONS (14)
  - Asthenia [Not Recovered/Not Resolved]
  - Ischaemic stroke [Unknown]
  - Carotid artery occlusion [Unknown]
  - Aphasia [Unknown]
  - Cerebral arteriosclerosis [Unknown]
  - Encephalomalacia [Unknown]
  - Confusional state [Unknown]
  - Hepatocellular carcinoma [Unknown]
  - Deafness bilateral [Unknown]
  - Anaemia [Unknown]
  - Headache [Not Recovered/Not Resolved]
  - Dysarthria [Unknown]
  - Pain [Unknown]
  - Lymphadenopathy [Unknown]
